FAERS Safety Report 4286046-5 (Version None)
Quarter: 2004Q1

REPORT INFORMATION
  Report Type: 
  Country: None (occurrence: None)
  Receive Date: 20040203
  Receipt Date: 20040121
  Transmission Date: 20041129
  Serious: Yes (Life-Threatening, Hospitalization, Other)
  Sender: FDA-Public Use
  Company Number: A214068

PATIENT
  Sex: Male
  Weight: 53.5244 kg

DRUGS (8)
  1. GEODON [Suspect]
     Indication: PSYCHOTIC DISORDER
     Dosage: ORAL
     Route: 048
     Dates: start: 20010401, end: 20020401
  2. CARBAMAZEPINE [Concomitant]
  3. NADOLOL [Concomitant]
  4. VALPROATE SEMISODIUM [Concomitant]
  5. CLOMIPRAMINE HCL [Concomitant]
  6. HYDROXYZINE EMBONATE [Concomitant]
  7. DONNATAL [Concomitant]
  8. CLONAZEPAM [Concomitant]

REACTIONS (13)
  - ARTHRITIS [None]
  - BIPOLAR DISORDER [None]
  - BODY HEIGHT DECREASED [None]
  - CONDITION AGGRAVATED [None]
  - CONFUSIONAL STATE [None]
  - DEPRESSION [None]
  - ENZYME ABNORMALITY [None]
  - FEELING ABNORMAL [None]
  - HEPATOCELLULAR DAMAGE [None]
  - HOMICIDAL IDEATION [None]
  - MEDICATION ERROR [None]
  - OSTEOPOROSIS [None]
  - PSYCHOTIC DISORDER [None]
